FAERS Safety Report 11971048 (Version 1)
Quarter: 2016Q1

REPORT INFORMATION
  Report Type: Spontaneous
  Country: US (occurrence: US)
  Receive Date: 20160128
  Receipt Date: 20160128
  Transmission Date: 20160526
  Serious: Yes (Hospitalization)
  Sender: FDA-Public Use
  Company Number: US-UNITED THERAPEUTICS-UNT-2016-001026

PATIENT
  Sex: Female

DRUGS (1)
  1. TYVASO [Suspect]
     Active Substance: TREPROSTINIL
     Indication: PULMONARY ARTERIAL HYPERTENSION
     Dosage: 54 ?G, QID
     Dates: start: 20121124

REACTIONS (5)
  - Urinary tract infection [Unknown]
  - Asthenia [Unknown]
  - Renal impairment [Unknown]
  - Blood potassium decreased [Unknown]
  - Fall [Unknown]

NARRATIVE: CASE EVENT DATE: 20151224
